FAERS Safety Report 3955576 (Version 3)
Quarter: 2020Q3

REPORT INFORMATION
  Report Type: Report from Study
  Country: AU (occurrence: AU)
  Receive Date: 20030530
  Receipt Date: 20040910
  Transmission Date: 20201104
  Serious: Yes (Hospitalization)
  Sender: FDA-Public Use
  Company Number: APCDSS2003000572

PATIENT
  Age: 69 Year
  Sex: Female
  Weight: 88 kg

DRUGS (9)
  1. CARTIA XT [Concomitant]
     Active Substance: DILTIAZEM HYDROCHLORIDE
     Indication: PROPHYLAXIS
     Route: 049
  2. HYDROZOLE CREAM 1% [Concomitant]
     Indication: DERMATITIS ATOPIC
     Route: 003
     Dates: start: 20020401
  3. PLACEBO [Suspect]
     Active Substance: UNSPECIFIED INGREDIENT
     Route: 049
     Dates: start: 20010928
  4. PAROXETINE HYDROCHLORIDE. [Concomitant]
     Active Substance: PAROXETINE HYDROCHLORIDE
     Route: 049
     Dates: start: 200211
  5. EVISTA [Suspect]
     Active Substance: RALOXIFENE HYDROCHLORIDE
     Indication: OSTEOPOROSIS
     Route: 049
     Dates: end: 20030401
  6. VIOXX [Concomitant]
     Active Substance: ROFECOXIB
     Indication: OSTEOARTHRITIS
     Route: 049
  7. NATURE B PURE NEW ZEALAND BEE POLLEN [Concomitant]
     Route: 065
     Dates: start: 20020312
  8. ACETAMINOPHEN. [Concomitant]
     Active Substance: ACETAMINOPHEN
     Indication: HEADACHE
     Route: 049
     Dates: start: 20010930
  9. PLACEBO [Suspect]
     Active Substance: UNSPECIFIED INGREDIENT
     Route: 049
     Dates: start: 20010928

REACTIONS (10)
  - Atrial flutter [Recovered/Resolved]
  - Electrocardiogram abnormal [None]
  - Gamma-glutamyltransferase increased [None]
  - Deep vein thrombosis [Recovered/Resolved]
  - Fatigue [None]
  - Hypertension [None]
  - Tachycardia [None]
  - Blood alkaline phosphatase increased [None]
  - Alanine aminotransferase increased [None]
  - Pulmonary embolism [Recovered/Resolved]

NARRATIVE: CASE EVENT DATE: 20030414
